FAERS Safety Report 15501395 (Version 1)
Quarter: 2018Q4

REPORT INFORMATION
  Report Type: Spontaneous
  Country: FR (occurrence: FR)
  Receive Date: 20181015
  Receipt Date: 20181015
  Transmission Date: 20190205
  Serious: Yes (Life-Threatening, Hospitalization)
  Sender: FDA-Public Use
  Company Number: FR-009507513-1810FRA004165

PATIENT
  Age: 62 Year
  Sex: Male
  Weight: 57 kg

DRUGS (6)
  1. LANSOPRAZOLE. [Concomitant]
     Active Substance: LANSOPRAZOLE
  2. PERFALGAN [Concomitant]
     Active Substance: ACETAMINOPHEN
  3. ZERBAXA [Suspect]
     Active Substance: CEFTOLOZANE SULFATE\TAZOBACTAM SODIUM
     Indication: PSEUDOMONAS INFECTION
     Dosage: 3 DF, QD
     Route: 041
     Dates: start: 20180712, end: 20180715
  4. CETIRIZINE HYDROCHLORIDE. [Concomitant]
     Active Substance: CETIRIZINE HYDROCHLORIDE
  5. COLIMYCINE (COLISTIMETHATE SODIUM) [Suspect]
     Active Substance: COLISTIMETHATE SODIUM
     Indication: PSEUDOMONAS INFECTION
     Route: 041
     Dates: start: 20180712, end: 20180715
  6. VOGALENE [Concomitant]
     Active Substance: METOPIMAZINE

REACTIONS (3)
  - Tongue oedema [Not Recovered/Not Resolved]
  - Acute kidney injury [Not Recovered/Not Resolved]
  - Face oedema [Not Recovered/Not Resolved]

NARRATIVE: CASE EVENT DATE: 20180715
